FAERS Safety Report 18242955 (Version 6)
Quarter: 2020Q4

REPORT INFORMATION
  Report Type: Spontaneous
  Country: US (occurrence: US)
  Receive Date: 20200908
  Receipt Date: 20201218
  Transmission Date: 20210113
  Serious: No
  Sender: FDA-Public Use
  Company Number: US-GLAXOSMITHKLINE-US2020AMR179820

PATIENT
  Age: 51 Year
  Sex: Female

DRUGS (4)
  1. ZEJULA [Suspect]
     Active Substance: NIRAPARIB
     Dosage: 200 MG, QD
     Dates: start: 20200831
  2. ZEJULA [Suspect]
     Active Substance: NIRAPARIB
     Indication: OVARIAN CANCER
     Dosage: 200 MG, QD
     Dates: start: 20200828
  3. ZEJULA [Suspect]
     Active Substance: NIRAPARIB
     Dosage: 200 MG, QD
  4. ZEJULA [Suspect]
     Active Substance: NIRAPARIB
     Dosage: 100 MG

REACTIONS (9)
  - Hot flush [Unknown]
  - Hypoaesthesia [Not Recovered/Not Resolved]
  - Product dose omission issue [Unknown]
  - Headache [Unknown]
  - Constipation [Unknown]
  - Fatigue [Unknown]
  - Rhinorrhoea [Unknown]
  - Contusion [Unknown]
  - Ear pain [Unknown]

NARRATIVE: CASE EVENT DATE: 20200903
